FAERS Safety Report 7482850-0 (Version None)
Quarter: 2011Q2

REPORT INFORMATION
  Report Type: 
  Country: None (occurrence: None)
  Receive Date: 20110516
  Receipt Date: 20110502
  Transmission Date: 20111010
  Serious: Yes (Death, Life-Threatening, Hospitalization)
  Sender: FDA-Public Use
  Company Number: DE-PFIZER INC-HQWYE192412JUN06

PATIENT
  Age: 56 Year
  Sex: Male
  Weight: 72 kg

DRUGS (14)
  1. ZIENAM [Concomitant]
     Dosage: UNK
     Route: 065
     Dates: start: 20060517, end: 20060522
  2. TACROLIMUS [Concomitant]
     Dosage: UNK
     Dates: start: 20060531
  3. SIROLIMUS [Suspect]
  4. CIPROFLOXACIN [Concomitant]
     Dosage: UNK
     Route: 065
     Dates: start: 20060517, end: 20060528
  5. NEXIUM [Concomitant]
  6. TORSEMIDE [Concomitant]
     Dosage: UNK
  7. URSODEOXYCHOLIC ACID [Concomitant]
  8. SIROLIMUS [Suspect]
     Indication: HEPATIC NEOPLASM MALIGNANT RECURRENT
     Dosage: 2 MG, 1X/DAY
     Route: 048
     Dates: start: 20060427, end: 20060601
  9. NEORECORMON [Concomitant]
     Dosage: UNK
     Dates: end: 20060720
  10. ENOXAPARIN SODIUM [Concomitant]
     Dosage: UNK
     Dates: start: 20060517, end: 20060609
  11. CELLCEPT [Concomitant]
     Dosage: UNK
     Dates: start: 20060825, end: 20060911
  12. SIROLIMUS [Suspect]
     Indication: PROPHYLAXIS AGAINST TRANSPLANT REJECTION
  13. CELLCEPT [Concomitant]
     Dosage: UNK
     Dates: start: 20060427, end: 20060517
  14. ALLOPURINOL [Concomitant]

REACTIONS (5)
  - BLOOD BILIRUBIN INCREASED [None]
  - PNEUMONIA [None]
  - TRANSPLANT FAILURE [None]
  - HEPATIC ARTERY STENOSIS [None]
  - PLEURAL EFFUSION [None]
